FAERS Safety Report 9689709 (Version 3)
Quarter: 2013Q4

REPORT INFORMATION
  Report Type: Spontaneous
  Country: US (occurrence: US)
  Receive Date: 20131115
  Receipt Date: 20131121
  Transmission Date: 20140711
  Serious: Yes (Death)
  Sender: FDA-Public Use
  Company Number: US-ROCHE-1304519

PATIENT
  Sex: Female
  Weight: 67.19 kg

DRUGS (7)
  1. XELODA [Suspect]
     Indication: BREAST CANCER FEMALE
     Dosage: 3 TWICE A DAY FOR 14 DAYS ON 7 DAYS OFF
     Route: 065
     Dates: start: 20121022
  2. XELODA [Suspect]
     Dosage: TWICE IN A DAY D1-D14
     Route: 048
     Dates: start: 20121217, end: 20131112
  3. HYDROCHLOROTHIAZIDE [Concomitant]
  4. ATENOLOL [Concomitant]
  5. LEVETIRACETAM [Concomitant]
  6. VIACTIV [Concomitant]
  7. ALEVE [Concomitant]

REACTIONS (1)
  - Metastases to central nervous system [Fatal]
